FAERS Safety Report 8535265-8 (Version None)
Quarter: 2012Q3

REPORT INFORMATION
  Report Type: 
  Country: None (occurrence: None)
  Receive Date: 20120725
  Receipt Date: 20120717
  Transmission Date: 20120928
  Serious: Yes (Other)
  Sender: FDA-Public Use
  Company Number: JP-MSD-1207JPN007762

PATIENT

DRUGS (4)
  1. IMIPRAMINE HCL [Concomitant]
  2. SULPIRIDE [Concomitant]
  3. MIRTAZAPINE [Suspect]
     Dosage: UNK
     Route: 048
  4. ARIPIPRAZOLE [Concomitant]

REACTIONS (1)
  - PNEUMONIA ASPIRATION [None]
